FAERS Safety Report 5164263-X (Version None)
Quarter: 2006Q4

REPORT INFORMATION
  Report Type: 
  Country: None (occurrence: None)
  Receive Date: 20060918
  Receipt Date: 20051101
  Transmission Date: 20070319
  Serious: Yes (Other)
  Sender: FDA-Public Use
  Company Number: US-JNJFOC-20051101166

PATIENT
  Age: 39 Year
  Sex: Female
  Weight: 68.4932 kg

DRUGS (1)
  1. TOPAMAX [Suspect]
     Indication: MIGRAINE PROPHYLAXIS
     Dosage: 100 MG, 1 IN 1 DAY, ORAL
     Route: 048
     Dates: start: 20050801, end: 20051027

REACTIONS (10)
  - ALOPECIA [None]
  - ARTHRALGIA [None]
  - DEPRESSION [None]
  - DISTURBANCE IN ATTENTION [None]
  - HAIR TEXTURE ABNORMAL [None]
  - MUSCLE TIGHTNESS [None]
  - PARAESTHESIA [None]
  - SKIN DISORDER [None]
  - SUICIDAL IDEATION [None]
  - THINKING ABNORMAL [None]
